FAERS Safety Report 20502154 (Version 1)
Quarter: 2022Q1

REPORT INFORMATION
  Report Type: Spontaneous
  Country: US (occurrence: US)
  Receive Date: 20220222
  Receipt Date: 20220222
  Transmission Date: 20220423
  Serious: Yes (Other)
  Sender: FDA-Public Use
  Company Number: US-SA-SAC20220218000182

PATIENT
  Age: 32 Year
  Sex: Male

DRUGS (1)
  1. ZANTAC [Suspect]
     Active Substance: RANITIDINE HYDROCHLORIDE
     Indication: Dyspepsia
     Dosage: DOE: UNKNOWN AT THIS TIME FREQUENCY: PERIODS OF NON-USE (AT LEAST 3 MONTHS WITHOUT USE)
     Dates: start: 198012, end: 200601

REACTIONS (2)
  - Prostate cancer [Unknown]
  - Aesthesioneuroblastoma [Unknown]

NARRATIVE: CASE EVENT DATE: 19930901
